FAERS Safety Report 5744135-X (Version None)
Quarter: 2008Q2

REPORT INFORMATION
  Report Type: 
  Country: None (occurrence: None)
  Receive Date: 20080520
  Receipt Date: 20080515
  Transmission Date: 20081010
  Serious: Yes (Hospitalization)
  Sender: FDA-Public Use
  Company Number: B0520890A

PATIENT
  Age: 75 Year
  Sex: Male

DRUGS (4)
  1. ZIAGEN [Suspect]
     Indication: HIV INFECTION
     Route: 048
  2. EPIVIR [Suspect]
     Indication: HIV INFECTION
     Route: 048
  3. VIDEX [Concomitant]
     Indication: HIV INFECTION
     Route: 048
  4. ANTIRETROVIRAL MEDICATIONS [Concomitant]
     Indication: HIV INFECTION
     Route: 048

REACTIONS (4)
  - DRUG PRESCRIBING ERROR [None]
  - INTERCEPTED DRUG ADMINISTRATION ERROR [None]
  - MALAISE [None]
  - PATHOGEN RESISTANCE [None]
